FAERS Safety Report 5976348-6 (Version None)
Quarter: 2008Q4

REPORT INFORMATION
  Report Type: 
  Country: None (occurrence: None)
  Receive Date: 20081202
  Receipt Date: 20081111
  Transmission Date: 20090506
  Serious: No
  Sender: FDA-Public Use
  Company Number: US-B.I. PHARMACEUTICALS,INC./RIDGEFIELD-2008-BP-16142BP

PATIENT
  Age: 18 Year
  Sex: Female

DRUGS (5)
  1. MIRAPEX [Suspect]
     Indication: RESTLESS LEGS SYNDROME
     Dosage: .25MG
     Dates: start: 20080918, end: 20080920
  2. PAXIL [Concomitant]
     Dates: start: 20080814
  3. PRILOSEC OTC [Concomitant]
     Dates: start: 20080207
  4. ADVAIR HFA [Concomitant]
     Dates: start: 20080402
  5. LAMICTAL [Concomitant]
     Dates: start: 20030101

REACTIONS (1)
  - HALLUCINATION, VISUAL [None]
